FAERS Safety Report 4293804-X (Version None)
Quarter: 2004Q1

REPORT INFORMATION
  Report Type: 
  Country: None (occurrence: None)
  Receive Date: 20040210
  Receipt Date: 20040128
  Transmission Date: 20041129
  Serious: Yes (Other)
  Sender: FDA-Public Use
  Company Number: 2004196398IT

PATIENT
  Age: 28 Year
  Sex: Female

DRUGS (1)
  1. ROGAINE [Suspect]
     Indication: HAIR TEXTURE ABNORMAL
     Dosage: QD, TOPICAL
     Route: 061

REACTIONS (10)
  - ABORTION INDUCED [None]
  - CARDIOMEGALY [None]
  - CEREBRAL VENTRICLE DILATATION [None]
  - CONGENITAL CENTRAL NERVOUS SYSTEM ANOMALY [None]
  - DEVELOPMENTAL DELAY [None]
  - DRUG EXPOSURE DURING PREGNANCY [None]
  - INFLUENZA [None]
  - PYREXIA [None]
  - SMALL FOR DATES BABY [None]
  - VASCULAR ANOMALY [None]
